FAERS Safety Report 15746060 (Version 2)
Quarter: 2018Q4

REPORT INFORMATION
  Report Type: Spontaneous
  Country: GB (occurrence: GB)
  Receive Date: 20181220
  Receipt Date: 20181221
  Transmission Date: 20190205
  Serious: Yes (Disabling)
  Sender: FDA-Public Use
  Company Number: GB-PFIZER INC-17117

PATIENT
  Age: 60 Year
  Sex: Female

DRUGS (7)
  1. METHOTREXATE (METHOTREXATE SODIUM) [Suspect]
     Active Substance: METHOTREXATE SODIUM
     Dosage: 10 MG, FREQ: WEEKLY
     Route: 048
     Dates: start: 20070525
  2. DIXARIT [Concomitant]
     Active Substance: CLONIDINE HYDROCHLORIDE
     Dosage: 50 MG, FREQ: TID
     Route: 065
     Dates: start: 20050424
  3. CLONIDINE. [Concomitant]
     Active Substance: CLONIDINE
     Dosage: FREQ: UNK
     Route: 065
     Dates: start: 20060424
  4. METHOTREXATE (METHOTREXATE SODIUM) [Suspect]
     Active Substance: METHOTREXATE SODIUM
     Dosage: 5MG OR 7.5MG WEEKLY; FREQ: WEEKLY
     Route: 048
     Dates: start: 20060424
  5. MELOXICAM. [Concomitant]
     Active Substance: MELOXICAM
     Dosage: 15 MG, DAILY
     Route: 065
  6. METHOTREXATE (METHOTREXATE SODIUM) [Suspect]
     Active Substance: METHOTREXATE SODIUM
     Indication: RHEUMATOID ARTHRITIS
     Dosage: 15 MG, FREQ: WEEKLY
     Route: 048
     Dates: start: 20060901
  7. FOLIC ACID. [Concomitant]
     Active Substance: FOLIC ACID
     Dosage: 5 MG, WEEKLY (USED WITH METHOTREXATE)
     Route: 048
     Dates: start: 20060424

REACTIONS (1)
  - Rash [Not Recovered/Not Resolved]

NARRATIVE: CASE EVENT DATE: 20070526
